FAERS Safety Report 18800115 (Version 1)
Quarter: 2021Q1

REPORT INFORMATION
  Report Type: Spontaneous
  Country: CA (occurrence: CA)
  Receive Date: 20210128
  Receipt Date: 20210128
  Transmission Date: 20210419
  Serious: Yes (Other)
  Sender: FDA-Public Use
  Company Number: CA-PFIZER INC-2021061618

PATIENT
  Age: 87 Year
  Sex: Female

DRUGS (5)
  1. XELJANZ [Concomitant]
     Active Substance: TOFACITINIB CITRATE
     Indication: RHEUMATOID ARTHRITIS
     Dosage: 5 MG, 1X/DAY ( 1/2 DOSE 5 MG PO ONCE DAILY NOT YET STARTED)
     Route: 048
  2. METHOTREXATE SODIUM. [Suspect]
     Active Substance: METHOTREXATE SODIUM
     Indication: RHEUMATOID ARTHRITIS
     Dosage: 1 DF
     Dates: end: 2015
  3. HYDROXYCHLOROQUINE [Suspect]
     Active Substance: HYDROXYCHLOROQUINE
     Dosage: UNK
     Dates: end: 2015
  4. ETANERCEPT [Concomitant]
     Active Substance: ETANERCEPT
     Dosage: 50 MG, WEEKLY
     Route: 065
     Dates: start: 20110127, end: 201209
  5. ABATACEPT [Concomitant]
     Active Substance: ABATACEPT
     Dosage: UNK
     Dates: start: 201201, end: 202008

REACTIONS (3)
  - Drug ineffective [Not Recovered/Not Resolved]
  - Gastrointestinal disorder [Unknown]
  - Drug intolerance [Unknown]
